FAERS Safety Report 11737417 (Version 2)
Quarter: 2015Q4

REPORT INFORMATION
  Report Type: Report from Study
  Country: HR (occurrence: HR)
  Receive Date: 20151113
  Receipt Date: 20151130
  Transmission Date: 20160304
  Serious: Yes (Hospitalization)
  Sender: FDA-Public Use
  Company Number: HR-ASTELLAS-2015US041731

PATIENT
  Age: 74 Year
  Sex: Female

DRUGS (14)
  1. CELLCEPT [Suspect]
     Active Substance: MYCOPHENOLATE MOFETIL\MYCOPHENOLATE MOFETIL HYDROCHLORIDE
     Indication: PROPHYLAXIS AGAINST TRANSPLANT REJECTION
     Dosage: 1000 MG, DAILY DOSE
     Route: 048
     Dates: start: 20141031, end: 20150105
  2. CONTROLOC                          /01263201/ [Concomitant]
     Indication: GASTRITIS PROPHYLAXIS
     Dosage: 40 MG, DAILY DOSE
     Route: 048
     Dates: start: 20141031
  3. MYFORTIC [Suspect]
     Active Substance: MYCOPHENOLATE SODIUM
     Indication: PROPHYLAXIS AGAINST TRANSPLANT REJECTION
     Dosage: 360 MG, DAILY DOSE
     Route: 065
     Dates: start: 20150109
  4. VAIRA [Concomitant]
     Indication: SCHIZOPHRENIA
     Dosage: 10 MG, DAILY DOSE
     Route: 048
     Dates: start: 20150206
  5. CERTICAN [Suspect]
     Active Substance: EVEROLIMUS
     Indication: PROPHYLAXIS AGAINST TRANSPLANT REJECTION
     Dosage: 2 MG, DAILY DOSE
     Route: 048
     Dates: start: 20150112
  6. PRAXITEN [Concomitant]
     Active Substance: OXAZEPAM
     Indication: ANXIETY
     Dosage: 15 MG, DAILY DOSE
     Route: 048
     Dates: start: 20141228
  7. TACROLIMUS. [Suspect]
     Active Substance: TACROLIMUS
     Indication: PROPHYLAXIS AGAINST TRANSPLANT REJECTION
     Dosage: 4 MG, DAILY DOSE
     Route: 048
     Dates: start: 20141102, end: 20141230
  8. CONCOR [Concomitant]
     Active Substance: BISOPROLOL FUMARATE
     Indication: HYPERTENSION
     Dosage: 1.25 MG, DAILY DOSE
     Route: 048
  9. ZOLOFT [Concomitant]
     Active Substance: SERTRALINE HYDROCHLORIDE
     Indication: DEPRESSION
     Dosage: 100 MG, DAILY DOSE
     Route: 048
     Dates: start: 20141102
  10. DAKTARIN                           /00310801/ [Concomitant]
     Active Substance: MICONAZOLE NITRATE
     Indication: PROPHYLAXIS
     Dosage: UNK UNK, UNKNOWN FREQ.
     Route: 048
     Dates: start: 20150102
  11. CLEXANE [Concomitant]
     Active Substance: ENOXAPARIN SODIUM
     Indication: THROMBOSIS PROPHYLAXIS
     Dosage: 4000 MG, DAILY DOSE
     Route: 030
     Dates: start: 20141031
  12. MEDROL [Suspect]
     Active Substance: METHYLPREDNISOLONE
     Indication: PROPHYLAXIS AGAINST TRANSPLANT REJECTION
     Dosage: 20 MG, DAILY DOSE
     Route: 048
     Dates: start: 20141031
  13. MYFORTIC [Suspect]
     Active Substance: MYCOPHENOLATE SODIUM
     Route: 048
     Dates: start: 20151009
  14. NORVASC [Concomitant]
     Active Substance: AMLODIPINE BESYLATE
     Indication: HYPERTENSION
     Dosage: 10 MG, DAILY DOSE
     Route: 048
     Dates: start: 20150122

REACTIONS (6)
  - Lymphocele [Recovered/Resolved]
  - Urinary tract infection [Recovered/Resolved]
  - Diarrhoea [Recovered/Resolved]
  - Neurotoxicity [Unknown]
  - Febrile neutropenia [Recovered/Resolved]
  - Transplant rejection [Recovering/Resolving]

NARRATIVE: CASE EVENT DATE: 20141120
